FAERS Safety Report 8533510-6 (Version None)
Quarter: 2012Q3

REPORT INFORMATION
  Report Type: 
  Country: None (occurrence: None)
  Receive Date: 20120724
  Receipt Date: 20120723
  Transmission Date: 20120928
  Serious: Yes (Death, Other)
  Sender: FDA-Public Use
  Company Number: US-ELI_LILLY_AND_COMPANY-US201207006986

PATIENT
  Sex: Female

DRUGS (1)
  1. ALIMTA [Suspect]
     Dosage: UNK UNK, UNKNOWN
     Route: 065
     Dates: start: 20110819, end: 20110930

REACTIONS (3)
  - NEOPLASM PROGRESSION [None]
  - DEATH [None]
  - DRUG INTOLERANCE [None]
